FAERS Safety Report 7117886-2 (Version None)
Quarter: 2010Q4

REPORT INFORMATION
  Report Type: 
  Country: None (occurrence: None)
  Receive Date: 20101118
  Receipt Date: 20101118
  Transmission Date: 20110411
  Serious: Yes (Death)
  Sender: FDA-Public Use
  Company Number: None

PATIENT
  Age: 78 Year
  Sex: Male

DRUGS (8)
  1. REVLIMID [Suspect]
     Indication: MULTIPLE MYELOMA
     Dosage: 25MG DAILY ORALLY
     Route: 048
     Dates: start: 20091201, end: 20100301
  2. SPIRONOLACTONE [Concomitant]
  3. K-TAB [Concomitant]
  4. LASIX [Concomitant]
  5. ATROVENT [Concomitant]
  6. COLACE [Concomitant]
  7. LEVOTHROID [Concomitant]
  8. NASAREL [Concomitant]

REACTIONS (1)
  - HOSPICE CARE [None]
